FAERS Safety Report 16132137 (Version 4)
Quarter: 2019Q2

REPORT INFORMATION
  Report Type: Report from Study
  Country: ES (occurrence: ES)
  Receive Date: 20190329
  Receipt Date: 20190405
  Transmission Date: 20190711
  Serious: Yes (Hospitalization)
  Sender: FDA-Public Use
  Company Number: ES-ACCORD-116170

PATIENT
  Age: 71 Year
  Sex: Female

DRUGS (7)
  1. LEVOTHYROXINE SANOFI-SYNTHELABO [Concomitant]
     Dosage: 1 CP DIA
     Dates: start: 20160101
  2. BISOPROLOL AUROVITAS [Concomitant]
     Dosage: 1/2-0-1/2
     Route: 048
     Dates: start: 20160101
  3. ESIDREX [Interacting]
     Active Substance: HYDROCHLOROTHIAZIDE
     Indication: PRODUCT USED FOR UNKNOWN INDICATION
     Dosage: 1/2-0-0
     Route: 048
     Dates: start: 20160101, end: 20180119
  4. SINTROM [Concomitant]
     Active Substance: ACENOCOUMAROL
     Dosage: SP
     Dates: start: 19980101
  5. PEDIATRIC LANACORDIN [Concomitant]
     Dosage: 2 ML DIA
     Route: 048
     Dates: start: 20160101
  6. ALDACTONE [Interacting]
     Active Substance: SPIRONOLACTONE
     Indication: PRODUCT USED FOR UNKNOWN INDICATION
     Dosage: 1/2-0-0
     Route: 048
     Dates: start: 20180104, end: 20180119
  7. FUROSEMIDE. [Suspect]
     Active Substance: FUROSEMIDE
     Indication: PRODUCT USED FOR UNKNOWN INDICATION
     Dosage: 2-0-2-1
     Route: 048
     Dates: start: 20180104, end: 20180119

REACTIONS (2)
  - Drug interaction [Unknown]
  - Hyponatraemia [Recovered/Resolved]

NARRATIVE: CASE EVENT DATE: 20180208
